FAERS Safety Report 8265368-7 (Version None)
Quarter: 2012Q2

REPORT INFORMATION
  Report Type: 
  Country: None (occurrence: None)
  Receive Date: 20120406
  Receipt Date: 20120402
  Transmission Date: 20120825
  Serious: Yes (Other)
  Sender: FDA-Public Use
  Company Number: DK-ABBOTT-12P-044-0921400-00

PATIENT
  Age: 23 Year
  Sex: Female

DRUGS (4)
  1. VALPROIC ACID [Interacting]
     Route: 048
  2. VALPROIC ACID [Suspect]
     Indication: MOOD SWINGS
     Route: 048
     Dates: start: 20110517
  3. CODEINE SULFATE [Interacting]
     Indication: BACK PAIN
     Route: 048
     Dates: start: 20090501, end: 20100101
  4. CODEINE SULFATE [Interacting]
     Route: 048
     Dates: start: 20110519, end: 20110520

REACTIONS (9)
  - PRURITUS [None]
  - DRUG INTERACTION [None]
  - CHILLS [None]
  - ABDOMINAL PAIN UPPER [None]
  - VOMITING [None]
  - HEAT STROKE [None]
  - COLD SWEAT [None]
  - DIZZINESS [None]
  - SLEEP DISORDER [None]
